FAERS Safety Report 6742248-7 (Version None)
Quarter: 2010Q2

REPORT INFORMATION
  Report Type: 
  Country: None (occurrence: None)
  Receive Date: 20100526
  Receipt Date: 20100521
  Transmission Date: 20101027
  Serious: Yes (Other)
  Sender: FDA-Public Use
  Company Number: MY-MERCK-1005MYS00005

PATIENT
  Age: 65 Year
  Sex: Female

DRUGS (2)
  1. INVANZ [Suspect]
     Route: 042
     Dates: end: 20090401
  2. VANCOMYCIN [Suspect]
     Route: 042
     Dates: end: 20090401

REACTIONS (1)
  - STEVENS-JOHNSON SYNDROME [None]
